FAERS Safety Report 5976450-9 (Version None)
Quarter: 2008Q4

REPORT INFORMATION
  Report Type: 
  Country: None (occurrence: None)
  Receive Date: 20081126
  Receipt Date: 20081120
  Transmission Date: 20090506
  Serious: Yes (Disabling, Other)
  Sender: FDA-Public Use
  Company Number: CIP08002309

PATIENT
  Age: 81 Year
  Sex: Female
  Weight: 66.2 kg

DRUGS (7)
  1. ASACOL [Suspect]
     Indication: COLITIS ULCERATIVE
     Dosage: 800 MG TWICE DAILY, ORAL
     Route: 048
     Dates: end: 20080101
  2. AMIODARONE HCL [Suspect]
     Indication: ATRIAL FIBRILLATION
     Dosage: 100 MG DAILY, ORAL
     Route: 048
  3. SIMVASTATIN [Concomitant]
  4. SYNTHROID [Concomitant]
  5. ASPIRIN [Concomitant]
  6. FOSAMAX [Concomitant]
  7. LEXAPRO [Concomitant]

REACTIONS (1)
  - PULMONARY FIBROSIS [None]
